FAERS Safety Report 9996091 (Version 1)
Quarter: 2014Q1

REPORT INFORMATION
  Report Type: Spontaneous
  Country: US (occurrence: None)
  Receive Date: 20140228
  Receipt Date: 20140228
  Transmission Date: 20141002
  Serious: Yes (Hospitalization)
  Sender: FDA-Public Use
  Company Number: US-JNJFOC-20130206610

PATIENT
  Sex: Female
  Weight: 81.6 kg

DRUGS (2)
  1. IBUPROFEN [Suspect]
     Indication: PAIN
     Dates: start: 200508, end: 2006
  2. ATORVASTATIN CALCIUM (ATORVASTATIN CALCIUM) [Concomitant]

REACTIONS (2)
  - Perforated ulcer [None]
  - Drug ineffective [None]
